FAERS Safety Report 16083357 (Version 1)
Quarter: 2019Q1

REPORT INFORMATION
  Report Type: Report from Study
  Country: US (occurrence: US)
  Receive Date: 20190318
  Receipt Date: 20190318
  Transmission Date: 20190418
  Serious: No
  Sender: FDA-Public Use
  Company Number: US-ROCHE-2283853

PATIENT
  Age: 45 Year
  Sex: Female
  Weight: 64.92 kg

DRUGS (1)
  1. OCREVUS [Suspect]
     Active Substance: OCRELIZUMAB
     Indication: RELAPSING-REMITTING MULTIPLE SCLEROSIS
     Dosage: ONGOING:YES
     Route: 065
     Dates: start: 201706

REACTIONS (3)
  - Upper respiratory tract infection [Recovered/Resolved]
  - Otitis media [Recovered/Resolved]
  - Meniere^s disease [Recovered/Resolved]

NARRATIVE: CASE EVENT DATE: 20180801
